FAERS Safety Report 8221289-7 (Version None)
Quarter: 2012Q1

REPORT INFORMATION
  Report Type: 
  Country: None (occurrence: None)
  Receive Date: 20120320
  Receipt Date: 20120314
  Transmission Date: 20120608
  Serious: Yes (Hospitalization, Other)
  Sender: FDA-Public Use
  Company Number: DK-PFIZER INC-2011157836

PATIENT
  Age: 19 Year
  Sex: Female
  Weight: 73.6 kg

DRUGS (18)
  1. NORTRIPTYLINE HCL [Suspect]
     Indication: DEPRESSION
     Dosage: 25 MG, 2X/DAY
     Dates: start: 20090223, end: 20110701
  2. IMOVANE [Suspect]
     Indication: INSOMNIA
     Dosage: 7.5 MG, 1X/DAY
     Dates: start: 20060405, end: 20110401
  3. EFFEXOR [Suspect]
     Indication: PRODUCT USED FOR UNKNOWN INDICATION
     Dosage: 75 MG
     Dates: start: 20060928, end: 20081201
  4. ACETAMINOPHEN [Concomitant]
     Indication: NECK PAIN
     Dosage: 1 TABLET 3-4 TIMES DAILY
     Dates: start: 20060816
  5. MAGNESIUM HYDROXIDE [Concomitant]
     Dosage: 6-8 TABLETS DAILY
  6. TRAMADOL HCL [Suspect]
     Dosage: 50 MG, DAILY
     Dates: start: 20061116, end: 20061201
  7. PAROXETINE HCL [Suspect]
     Indication: DEPRESSION
     Dosage: 20 MG, 2X/DAY
     Dates: start: 20090223
  8. IBRUPROFEN [Suspect]
     Indication: HEADACHE
     Dosage: 600 MG, 3X/DAY
     Dates: start: 20041201
  9. MIANSERIN [Suspect]
     Indication: DEPRESSION
     Dosage: 10 MG, 1X/DAY
     Dates: start: 20080925, end: 20081201
  10. TRAMADOL HCL [Suspect]
     Indication: HEADACHE
     Dosage: 100 MG, DAILY
     Dates: start: 20060816, end: 20061116
  11. IBRUPROFEN [Suspect]
     Dosage: 800 MG, 3X/DAY
     Dates: end: 20110301
  12. MIRTAZAPINE [Suspect]
     Indication: ANXIETY
     Dosage: 15 MG, 1X/DAY
     Dates: start: 20060320
  13. PAROXETINE HYDROCHLORIDE [Concomitant]
     Dosage: UNK
     Dates: end: 20100101
  14. MIGEA [Suspect]
     Indication: MIGRAINE
     Dosage: 200 MG, 1X/DAY
     Dates: start: 20100618, end: 20100813
  15. IBUMETIN [Concomitant]
     Indication: PAIN
     Dosage: 600 MG, 3X/DAY
     Dates: start: 20061201
  16. TRUXAL [Suspect]
     Indication: PSYCHOTIC DISORDER
     Dosage: UNK
     Dates: start: 20061201, end: 20110801
  17. EFFEXOR [Suspect]
     Dosage: 150 MG
     Dates: end: 20081201
  18. PAMOL [Concomitant]
     Indication: NECK PAIN
     Dates: start: 20061201

REACTIONS (10)
  - SUICIDAL IDEATION [None]
  - FAECES HARD [None]
  - HAEMORRHOIDS [None]
  - OEDEMA [None]
  - RECTAL HAEMORRHAGE [None]
  - ABDOMINAL DISTENSION [None]
  - CONSTIPATION [None]
  - DEPRESSION [None]
  - DYSPEPSIA [None]
  - GASTROOESOPHAGEAL REFLUX DISEASE [None]
